FAERS Safety Report 18607675 (Version 2)
Quarter: 2020Q4

REPORT INFORMATION
  Report Type: Spontaneous
  Country: SE (occurrence: SE)
  Receive Date: 20201211
  Receipt Date: 20201217
  Transmission Date: 20210114
  Serious: Yes (Death, Hospitalization)
  Sender: FDA-Public Use
  Company Number: SE-MYLANLABS-2020M1101018

PATIENT
  Sex: Female

DRUGS (2)
  1. PREGABALIN. [Suspect]
     Active Substance: PREGABALIN
     Dosage: 25 MG (25 MG X 2)
     Route: 065
  2. PREGABALIN. [Suspect]
     Active Substance: PREGABALIN
     Indication: PRODUCT USED FOR UNKNOWN INDICATION
     Dosage: 25 MG
     Route: 065

REACTIONS (3)
  - Hiatus hernia [Fatal]
  - Volvulus [Fatal]
  - Concomitant disease aggravated [Fatal]
